FAERS Safety Report 13944668 (Version 1)
Quarter: 2017Q3

REPORT INFORMATION
  Report Type: Spontaneous
  Country: US (occurrence: US)
  Receive Date: 20170907
  Receipt Date: 20170907
  Transmission Date: 20171128
  Serious: No
  Sender: FDA-Public Use
  Company Number: US-ROCHE-1315014

PATIENT

DRUGS (1)
  1. RITUXAN [Suspect]
     Active Substance: RITUXIMAB
     Indication: RHEUMATOID ARTHRITIS
     Dosage: 4MG PER ML. WHICH AVERAGED OUT TO 100MG PER HOUR
     Route: 065
     Dates: start: 20131011

REACTIONS (3)
  - Heart rate increased [Unknown]
  - Infusion related reaction [Unknown]
  - Pruritus [Unknown]
